FAERS Safety Report 4853939-7 (Version None)
Quarter: 2005Q4

REPORT INFORMATION
  Report Type: 
  Country: None (occurrence: None)
  Receive Date: 20051213
  Receipt Date: 20051130
  Transmission Date: 20060501
  Serious: Yes (Disabling)
  Sender: FDA-Public Use
  Company Number: SUSI-2005-00857

PATIENT
  Age: 3 Year
  Sex: Female

DRUGS (1)
  1. CARBATROL [Suspect]
     Indication: COMPLEX PARTIAL SEIZURES
     Dates: start: 20000101, end: 20020101

REACTIONS (1)
  - APHASIA [None]
